FAERS Safety Report 7051234-1 (Version None)
Quarter: 2010Q4

REPORT INFORMATION
  Report Type: 
  Country: None (occurrence: None)
  Receive Date: 20101019
  Receipt Date: 20101013
  Transmission Date: 20110411
  Serious: Yes (Life-Threatening, Hospitalization, Other)
  Sender: FDA-Public Use
  Company Number: DE-BAXTER-2010BH022782

PATIENT
  Age: 3 Day
  Sex: Male
  Weight: 3 kg

DRUGS (4)
  1. GAMMAGARD LIQUID [Suspect]
     Indication: HAEMOLYSIS
     Route: 042
     Dates: start: 20100827, end: 20100827
  2. GAMMAGARD LIQUID [Suspect]
     Route: 042
     Dates: start: 20100827, end: 20100827
  3. DEXTROSE 5% [Suspect]
     Indication: PRODUCT USED FOR UNKNOWN INDICATION
     Route: 042
     Dates: start: 20100827, end: 20100827
  4. SODIUM CHLORIDE [Concomitant]
     Route: 042
     Dates: start: 20100827, end: 20100827

REACTIONS (5)
  - APNOEA [None]
  - CARDIAC FAILURE [None]
  - HYPOTONIA [None]
  - METABOLIC ACIDOSIS [None]
  - PARTIAL SEIZURES [None]
